FAERS Safety Report 7861459-0 (Version None)
Quarter: 2011Q4

REPORT INFORMATION
  Report Type: 
  Country: None (occurrence: None)
  Receive Date: 20111027
  Receipt Date: 20111019
  Transmission Date: 20120403
  Serious: Yes (Other)
  Sender: FDA-Public Use
  Company Number: US-JNJFOC-20110908962

PATIENT
  Sex: Female
  Weight: 67.59 kg

DRUGS (17)
  1. MAGNESIUM HYDROXIDE [Concomitant]
     Route: 048
  2. GUAIFENESIN [Concomitant]
     Route: 048
  3. FERROUS SULFATE TAB [Concomitant]
     Route: 048
  4. XARELTO [Suspect]
     Indication: THROMBOSIS PROPHYLAXIS
     Route: 048
     Dates: start: 20110817, end: 20110830
  5. ESTRADIOL [Concomitant]
     Route: 048
  6. OXYCODONE/ACETAMINOPHEN [Concomitant]
     Route: 048
  7. TEMAZEPAM [Concomitant]
     Route: 048
  8. OXYCODONE HCL [Concomitant]
     Route: 048
  9. LOVENOX [Concomitant]
     Indication: PRODUCT USED FOR UNKNOWN INDICATION
  10. PEPCID [Concomitant]
     Route: 048
  11. PERCOCET [Concomitant]
     Route: 048
  12. BISACODYL [Concomitant]
     Route: 048
  13. ATORVASTATIN CALCIUM [Concomitant]
     Route: 048
  14. FLEXERIL [Concomitant]
     Route: 048
  15. TYLENOL-500 [Concomitant]
     Route: 048
  16. VITAMIN D [Concomitant]
     Route: 048
  17. VALACYCLOVIR [Concomitant]
     Route: 048

REACTIONS (3)
  - SWELLING [None]
  - DEEP VEIN THROMBOSIS POSTOPERATIVE [None]
  - PAIN [None]
